FAERS Safety Report 6539758 (Version 2)
Quarter: 2020Q2

REPORT INFORMATION
  Report Type: Spontaneous
  Country: TR (occurrence: TR)
  Receive Date: 20080131
  Receipt Date: 20200413
  Transmission Date: 20200714
  Serious: Yes (Hospitalization)
  Sender: FDA-Public Use
  Company Number: PHBS2008TR01203

PATIENT
  Age: 60 Year
  Sex: Female

DRUGS (1)
  1. DICLOFENAC [Suspect]
     Active Substance: DICLOFENAC
     Indication: BACK PAIN
     Dosage: UNK
     Route: 030

REACTIONS (8)
  - Embolia cutis medicamentosa [Recovered/Resolved]
  - Injection site pain [Recovered/Resolved]
  - Injection site reaction [Recovered/Resolved]
  - Scar [Unknown]
  - Skin hypertrophy [Recovered/Resolved]
  - Injection site necrosis [Recovered/Resolved]
  - Skin necrosis [Recovered/Resolved]
  - Skin discolouration [Recovered/Resolved]
